FAERS Safety Report 8210587-9 (Version None)
Quarter: 2012Q1

REPORT INFORMATION
  Report Type: 
  Country: None (occurrence: None)
  Receive Date: 20120314
  Receipt Date: 20120308
  Transmission Date: 20120608
  Serious: No
  Sender: FDA-Public Use
  Company Number: US-PFIZER INC-2011284779

PATIENT
  Sex: Female
  Weight: 51.701 kg

DRUGS (1)
  1. CLEOCIN HYDROCHLORIDE [Suspect]
     Indication: VAGINAL INFECTION
     Dosage: UNK
     Route: 067
     Dates: start: 20111105, end: 20111105

REACTIONS (1)
  - DEVICE INEFFECTIVE [None]
